FAERS Safety Report 20215661 (Version 1)
Quarter: 2021Q4

REPORT INFORMATION
  Report Type: Spontaneous
  Country: US (occurrence: US)
  Receive Date: 20211222
  Receipt Date: 20211222
  Transmission Date: 20220303
  Serious: Yes (Other)
  Sender: FDA-Public Use
  Company Number: US-JNJFOC-20211236226

PATIENT
  Age: 77 Year
  Sex: Female
  Weight: 65.830 kg

DRUGS (2)
  1. XARELTO [Suspect]
     Active Substance: RIVAROXABAN
     Indication: Atrial fibrillation
     Dosage: PRESCRIPTION NUMBER 6192727N
     Route: 048
     Dates: start: 20211210
  2. XARELTO [Suspect]
     Active Substance: RIVAROXABAN
     Indication: Cerebrovascular accident prophylaxis

REACTIONS (3)
  - Hospitalisation [Unknown]
  - Knee arthroplasty [Unknown]
  - Weight decreased [Unknown]

NARRATIVE: CASE EVENT DATE: 20211212
